FAERS Safety Report 8052019-X (Version None)
Quarter: 2012Q1

REPORT INFORMATION
  Report Type: 
  Country: None (occurrence: None)
  Receive Date: 20120118
  Receipt Date: 20120112
  Transmission Date: 20120608
  Serious: Yes (Death, Other)
  Sender: FDA-Public Use
  Company Number: RU-JNJFOC-20111200190

PATIENT
  Age: 68 Year
  Sex: Female

DRUGS (8)
  1. XARELTO [Suspect]
     Route: 048
     Dates: start: 20111121, end: 20111121
  2. ANESTHESIA [Concomitant]
     Indication: ANAESTHESIA
     Dates: start: 20111121, end: 20111121
  3. PLASMA [Concomitant]
     Dates: start: 20111121, end: 20111121
  4. XARELTO [Suspect]
     Indication: HIP ARTHROPLASTY
     Route: 048
  5. INDAPAMID [Concomitant]
  6. XARELTO [Suspect]
     Route: 048
     Dates: start: 20111121, end: 20111121
  7. ENALAPRIL MALEATE [Concomitant]
  8. XARELTO [Suspect]
     Indication: THROMBOSIS PROPHYLAXIS
     Route: 048

REACTIONS (3)
  - CARDIAC FAILURE [None]
  - PULMONARY EMBOLISM [None]
  - PERIPHERAL EMBOLISM [None]
